FAERS Safety Report 9691414 (Version 4)
Quarter: 2014Q1

REPORT INFORMATION
  Report Type: Report from Study
  Country: CA (occurrence: CA)
  Receive Date: 20131115
  Receipt Date: 20140205
  Transmission Date: 20141002
  Serious: Yes (Other)
  Sender: FDA-Public Use
  Company Number: CA-ROCHE-1300443

PATIENT
  Age: 37 Year
  Sex: Female
  Weight: 118 kg

DRUGS (10)
  1. ACTEMRA [Suspect]
     Indication: RHEUMATOID ARTHRITIS
     Route: 042
     Dates: start: 20120319, end: 20140116
  2. ACTEMRA [Suspect]
     Route: 042
     Dates: start: 20130206
  3. ACTEMRA [Suspect]
     Route: 042
     Dates: start: 201305
  4. ACTEMRA [Suspect]
     Route: 042
     Dates: start: 201306
  5. ACTEMRA [Suspect]
     Route: 042
     Dates: start: 20130730
  6. ACTEMRA [Suspect]
     Route: 042
     Dates: start: 20130827
  7. TYLENOL EXTRA STRENGTH [Concomitant]
  8. RANITIDINE [Concomitant]
     Route: 065
  9. ATENOLOL [Concomitant]
     Route: 065
  10. CIPRALEX [Concomitant]
     Route: 065

REACTIONS (10)
  - Alanine aminotransferase increased [Not Recovered/Not Resolved]
  - Aspartate aminotransferase increased [Unknown]
  - Gamma-glutamyltransferase increased [Unknown]
  - White blood cell count decreased [Unknown]
  - Mean cell haemoglobin increased [Unknown]
  - Neutrophil count decreased [Unknown]
  - Eosinophil count increased [Unknown]
  - Herpes zoster [Unknown]
  - Weight decreased [Unknown]
  - Liver function test abnormal [Unknown]
